FAERS Safety Report 6601512-2 (Version None)
Quarter: 2010Q1

REPORT INFORMATION
  Report Type: 
  Country: None (occurrence: None)
  Receive Date: 20100225
  Receipt Date: 20100216
  Transmission Date: 20100710
  Serious: Yes (Death)
  Sender: FDA-Public Use
  Company Number: GB-PFIZER INC-2010019424

PATIENT
  Age: 63 Year
  Sex: Male
  Weight: 123 kg

DRUGS (1)
  1. CELECOXIB [Suspect]
     Indication: OSTEOARTHRITIS
     Dosage: 200 MG, 2X/DAY
     Route: 048
     Dates: start: 20090508

REACTIONS (2)
  - LUNG NEOPLASM MALIGNANT [None]
  - RENAL IMPAIRMENT [None]
